FAERS Safety Report 7908303-0 (Version None)
Quarter: 2011Q4

REPORT INFORMATION
  Report Type: 
  Country: None (occurrence: None)
  Receive Date: 20111111
  Receipt Date: 20111102
  Transmission Date: 20120403
  Serious: No
  Sender: FDA-Public Use
  Company Number: US-BIOGENIDEC-2011BI041998

PATIENT
  Age: 43 Year
  Sex: Female

DRUGS (3)
  1. VICODIN [Concomitant]
     Indication: PAIN
     Route: 048
     Dates: start: 20100101
  2. AVONEX [Suspect]
     Indication: MULTIPLE SCLEROSIS
     Route: 030
     Dates: start: 20110615
  3. IBUPROFEN [Concomitant]
     Indication: PAIN
     Route: 048
     Dates: start: 20080101

REACTIONS (8)
  - EXPOSURE TO COMMUNICABLE DISEASE [None]
  - DYSPNOEA [None]
  - CHEST DISCOMFORT [None]
  - INFLUENZA LIKE ILLNESS [None]
  - MUSCLE SPASMS [None]
  - SINUS DISORDER [None]
  - HEADACHE [None]
  - BACK PAIN [None]
